FAERS Safety Report 4673984-4 (Version None)
Quarter: 2005Q2

REPORT INFORMATION
  Report Type: 
  Country: None (occurrence: None)
  Receive Date: 20050525
  Receipt Date: 20050611
  Transmission Date: 20051028
  Serious: Yes (Hospitalization)
  Sender: FDA-Public Use
  Company Number: 2005EU000948

PATIENT
  Age: 14 Year
  Sex: Female

DRUGS (3)
  1. PROTOPIC [Suspect]
     Indication: DERMATITIS ATOPIC
     Dosage: 0.03% BID TOPICAL
     Route: 061
  2. PYOSTACINE       (PRISTINAMYCIN) [Concomitant]
  3. OXACILLIN [Concomitant]

REACTIONS (1)
  - OSTEOMYELITIS [None]
